FAERS Safety Report 4356386-X (Version None)
Quarter: 2004Q2

REPORT INFORMATION
  Report Type: 
  Country: None (occurrence: None)
  Receive Date: 20040506
  Receipt Date: 20040406
  Transmission Date: 20050107
  Serious: Yes (Life-Threatening)
  Sender: FDA-Public Use
  Company Number: 2004UW07103

PATIENT
  Age: 36 Year
  Sex: Female

DRUGS (4)
  1. SEROQUEL [Suspect]
     Indication: SCHIZOAFFECTIVE DISORDER
     Dosage: 800 MG, PO
     Route: 048
     Dates: start: 20031101, end: 20031208
  2. SEROQUEL [Suspect]
     Indication: SCHIZOAFFECTIVE DISORDER
     Dosage: 700 MG PO
     Route: 048
  3. SEROQUEL [Suspect]
     Indication: SCHIZOAFFECTIVE DISORDER
     Dosage: 400 MG PO
     Route: 048
  4. ZYPREXA [Concomitant]

REACTIONS (4)
  - DYSPNOEA [None]
  - DYSTONIA [None]
  - SPEECH DISORDER [None]
  - TOBACCO USER [None]
